FAERS Safety Report 20112786 (Version 1)
Quarter: 2021Q4

REPORT INFORMATION
  Report Type: Spontaneous
  Country: US (occurrence: None)
  Receive Date: 20211125
  Receipt Date: 20211125
  Transmission Date: 20220304
  Serious: No
  Sender: FDA-Public Use
  Company Number: 2021A812013

PATIENT
  Sex: Female

DRUGS (1)
  1. LOKELMA [Suspect]
     Active Substance: SODIUM ZIRCONIUM CYCLOSILICATE
     Indication: Hyperkalaemia
     Dosage: 10.0G ONCE/SINGLE ADMINISTRATION
     Route: 048
     Dates: start: 20211018

REACTIONS (1)
  - Gastric dilatation [Recovered/Resolved]

NARRATIVE: CASE EVENT DATE: 20211101
